FAERS Safety Report 20379726 (Version 3)
Quarter: 2022Q2

REPORT INFORMATION
  Report Type: Spontaneous
  Country: US (occurrence: US)
  Receive Date: 20220126
  Receipt Date: 20220502
  Transmission Date: 20220721
  Serious: Yes (Hospitalization, Other)
  Sender: FDA-Public Use
  Company Number: US-PFIZER INC-202200093314

PATIENT
  Age: 59 Year
  Sex: Female
  Weight: 99.79 kg

DRUGS (3)
  1. ARTHROTEC [Suspect]
     Active Substance: DICLOFENAC SODIUM\MISOPROSTOL
     Indication: Rheumatoid arthritis
     Dosage: 375 MG, 2X/DAY
     Route: 048
     Dates: start: 2005
  2. WARFARIN [Concomitant]
     Active Substance: WARFARIN
     Dosage: 12.5 MG, DAILY
     Route: 048
  3. LEVOFLOXACIN [Concomitant]
     Active Substance: LEVOFLOXACIN
     Dosage: 100 MG/ML INJECTED EVERY TWELVE HOURS

REACTIONS (6)
  - Knee arthroplasty [Unknown]
  - Fall [Unknown]
  - Wrist fracture [Unknown]
  - Post procedural haemorrhage [Unknown]
  - Post procedural swelling [Unknown]
  - Illness [Unknown]

NARRATIVE: CASE EVENT DATE: 20220227
